FAERS Safety Report 4685326-9 (Version None)
Quarter: 2005Q2

REPORT INFORMATION
  Report Type: 
  Country: None (occurrence: None)
  Receive Date: 20050608
  Receipt Date: 20050203
  Transmission Date: 20051028
  Serious: Yes (Hospitalization)
  Sender: FDA-Public Use
  Company Number: DE-ROCHE-397469

PATIENT
  Age: 56 Year
  Sex: Female
  Weight: 59 kg

DRUGS (6)
  1. PEG-INTERFERON ALFA 2A (RO 25-8310) [Suspect]
     Route: 058
     Dates: start: 20040123
  2. RIBAVIRIN [Suspect]
     Route: 048
     Dates: start: 20040123
  3. AMANTADINE HCL [Suspect]
     Route: 048
     Dates: start: 20040107
  4. CIPRAMIL [Concomitant]
  5. PANTOPRAZOLE SODIUM [Concomitant]
     Dates: start: 20041208
  6. CLEMASTINE FUMARATE [Concomitant]

REACTIONS (1)
  - LYMPHADENOPATHY [None]
